FAERS Safety Report 4718754-3 (Version None)
Quarter: 2005Q3

REPORT INFORMATION
  Report Type: 
  Country: None (occurrence: None)
  Receive Date: 20050719
  Receipt Date: 20041207
  Transmission Date: 20060218
  Serious: Yes (Other)
  Sender: FDA-Public Use
  Company Number: 2004235826US

PATIENT
  Age: 19 Year
  Sex: Male
  Weight: 113.3993 kg

DRUGS (2)
  1. CELEBREX [Suspect]
     Indication: BACK PAIN
     Dosage: 200 MG (200 MG, UNKNOWN), ORAL
     Route: 048
     Dates: start: 20030701, end: 20031001
  2. VITAMINS (VITAMINS) [Concomitant]

REACTIONS (3)
  - DYSSTASIA [None]
  - HAEMATEMESIS [None]
  - RECTAL HAEMORRHAGE [None]
